FAERS Safety Report 8550718-4 (Version None)
Quarter: 2012Q3

REPORT INFORMATION
  Report Type: 
  Country: None (occurrence: None)
  Receive Date: 20120730
  Receipt Date: 20120717
  Transmission Date: 20120928
  Serious: Yes (Other)
  Sender: FDA-Public Use
  Company Number: BE-GLAXOSMITHKLINE-B0816111A

PATIENT
  Sex: Male
  Weight: 70 kg

DRUGS (6)
  1. LAMICTAL [Suspect]
     Indication: PRODUCT USED FOR UNKNOWN INDICATION
     Dosage: 50MG PER DAY
     Route: 048
  2. AUGMENTIN '500' [Suspect]
     Indication: PRODUCT USED FOR UNKNOWN INDICATION
  3. TRAZODONE HCL [Concomitant]
     Dosage: 100MG PER DAY
  4. FENPROCOUMON [Concomitant]
  5. DIAMICRON (GLICLAZIDE) [Concomitant]
  6. KEPPRA [Suspect]
     Indication: PRODUCT USED FOR UNKNOWN INDICATION
     Dosage: 250MG PER DAY

REACTIONS (1)
  - HEPATITIS CHOLESTATIC [None]
